FAERS Safety Report 12517027 (Version 1)
Quarter: 2016Q2

REPORT INFORMATION
  Report Type: Report from Study
  Country: ES (occurrence: ES)
  Receive Date: 20160630
  Receipt Date: 20160630
  Transmission Date: 20160815
  Serious: Yes (Hospitalization)
  Sender: FDA-Public Use
  Company Number: ES-ASTRAZENECA-2016SE44103

PATIENT
  Age: 30172 Day
  Sex: Female
  Weight: 86 kg

DRUGS (11)
  1. FUROSEMIDE. [Concomitant]
     Active Substance: FUROSEMIDE
     Route: 048
     Dates: start: 2015, end: 20160403
  2. LEVOTHYROXINE SODIUM. [Concomitant]
     Active Substance: LEVOTHYROXINE SODIUM
     Route: 048
     Dates: start: 2015, end: 20160420
  3. SODIUM BEMIPARIN [Concomitant]
     Route: 058
     Dates: start: 20160404, end: 20160420
  4. LOSARTAN. [Concomitant]
     Active Substance: LOSARTAN
     Route: 048
     Dates: start: 20160404
  5. BROMAZEPAM [Concomitant]
     Active Substance: BROMAZEPAM
     Route: 048
     Dates: start: 2015
  6. NYSTATIN. [Concomitant]
     Active Substance: NYSTATIN
     Dosage: 25000 IU/ML TID
     Route: 058
     Dates: start: 20160401
  7. OLMESARTAN [Concomitant]
     Active Substance: OLMESARTAN
     Route: 048
     Dates: start: 2015, end: 20160404
  8. ATENOLOL. [Concomitant]
     Active Substance: ATENOLOL
     Route: 048
     Dates: start: 2015
  9. TAGRISSO [Suspect]
     Active Substance: OSIMERTINIB
     Indication: NON-SMALL CELL LUNG CANCER
     Route: 048
     Dates: start: 20151204, end: 20160401
  10. ACETYLSALICYLIC ACID [Concomitant]
     Active Substance: ASPIRIN
     Route: 048
     Dates: start: 2015
  11. TAGRISSO [Suspect]
     Active Substance: OSIMERTINIB
     Indication: NON-SMALL CELL LUNG CANCER
     Route: 048
     Dates: start: 20160406, end: 20160413

REACTIONS (2)
  - Decreased appetite [Recovered/Resolved]
  - Asthenia [Not Recovered/Not Resolved]

NARRATIVE: CASE EVENT DATE: 20160224
